FAERS Safety Report 9128136 (Version 1)
Quarter: 2013Q1

REPORT INFORMATION
  Report Type: Spontaneous
  Country: US (occurrence: US)
  Receive Date: 20130228
  Receipt Date: 20130228
  Transmission Date: 20140127
  Serious: No
  Sender: FDA-Public Use
  Company Number: US-009507513-1302USA013152

PATIENT
  Sex: Male

DRUGS (6)
  1. JANUVIA [Suspect]
     Indication: DIABETES MELLITUS
     Dosage: 100 MG TABLET ONCE DAILY
     Route: 048
     Dates: start: 2010
  2. LUNESTA [Concomitant]
  3. SIMVASTATIN TABLETS, USP [Concomitant]
  4. ATENOLOL [Concomitant]
  5. PANTOPRAZOLE [Concomitant]
  6. VICODIN ES TABLETS [Concomitant]

REACTIONS (2)
  - Blood glucose increased [Not Recovered/Not Resolved]
  - Therapeutic response decreased [Not Recovered/Not Resolved]
